FAERS Safety Report 20212082 (Version 2)
Quarter: 2024Q1

REPORT INFORMATION
  Report Type: Spontaneous
  Country: US (occurrence: US)
  Receive Date: 20211221
  Receipt Date: 20240213
  Transmission Date: 20240409
  Serious: No
  Sender: FDA-Public Use
  Company Number: US-ACORDA-ACO_170997_2021

PATIENT
  Age: 67 Year
  Sex: Male
  Weight: 94.785 kg

DRUGS (10)
  1. INBRIJA [Suspect]
     Active Substance: LEVODOPA
     Indication: Parkinson^s disease
     Dosage: 2 DOSAGE FORM, PRN, (NOT TO EXCEED 5 DOSES A DAY)
     Dates: start: 20210818
  2. INBRIJA [Suspect]
     Active Substance: LEVODOPA
     Indication: On and off phenomenon
     Dosage: 2 DOSAGE FORM, PRN, (NOT TO EXCEED 5 DOSES A DAY)
     Dates: start: 20210818
  3. INBRIJA [Suspect]
     Active Substance: LEVODOPA
     Dosage: 2 DOSAGE FORM, PRN, (NOT TO EXCEED 5 DOSES A DAY)
     Dates: start: 20210818
  4. INBRIJA [Suspect]
     Active Substance: LEVODOPA
     Dosage: 2 DOSAGE FORM, PRN, (NOT TO EXCEED 5 DOSES A DAY)
     Dates: start: 20210818
  5. INBRIJA [Suspect]
     Active Substance: LEVODOPA
     Dosage: 2 DOSAGE FORM, PRN, (NOT TO EXCEED 5 DOSES A DAY)
     Dates: start: 20210818
  6. INBRIJA [Suspect]
     Active Substance: LEVODOPA
     Dosage: 2 DOSAGE FORM, PRN, (NOT TO EXCEED 5 DOSES A DAY)
     Dates: start: 20210818
  7. INBRIJA [Suspect]
     Active Substance: LEVODOPA
     Dosage: 2 DOSAGE FORM, PRN, (NOT TO EXCEED 5 DOSES A DAY)
     Dates: start: 20210818
  8. INBRIJA [Suspect]
     Active Substance: LEVODOPA
     Dosage: 2 DOSAGE FORM, PRN, (NOT TO EXCEED 5 DOSES A DAY)
     Dates: start: 20210818
  9. CARBIDOPA LEVODOPA [Concomitant]
     Active Substance: CARBIDOPA\LEVODOPA
     Indication: Product used for unknown indication
     Dosage: 3 PILLS IN AM AND 2 PILLS IN PM
     Route: 065
  10. CARBIDOPA LEVODOPA [Concomitant]
     Active Substance: CARBIDOPA\LEVODOPA
     Dosage: 25MG/100MG: ONE TABLET FIVE TIMES PER DAY
     Route: 065

REACTIONS (12)
  - Speech disorder [Not Recovered/Not Resolved]
  - Condition aggravated [Not Recovered/Not Resolved]
  - Device defective [Unknown]
  - Device use issue [Unknown]
  - Device occlusion [Unknown]
  - Mobility decreased [Unknown]
  - Wrong technique in product usage process [Unknown]
  - Device use issue [Unknown]
  - Device occlusion [Unknown]
  - Device malfunction [Unknown]
  - Therapy cessation [Unknown]
  - Drug ineffective [Unknown]

NARRATIVE: CASE EVENT DATE: 20211130
